FAERS Safety Report 5481056-4 (Version None)
Quarter: 2007Q4

REPORT INFORMATION
  Report Type: 
  Country: None (occurrence: None)
  Receive Date: 20071009
  Receipt Date: 20070927
  Transmission Date: 20080405
  Serious: Yes (Other)
  Sender: FDA-Public Use
  Company Number: SG-PFIZER INC-2007081376

PATIENT
  Age: 14 Year
  Sex: Female

DRUGS (1)
  1. PHENYTOIN [Suspect]

REACTIONS (1)
  - MUCOSAL ULCERATION [None]
